FAERS Safety Report 18851150 (Version 4)
Quarter: 2021Q3

REPORT INFORMATION
  Report Type: Other
  Country: DE (occurrence: DE)
  Receive Date: 20210205
  Receipt Date: 20210917
  Transmission Date: 20211014
  Serious: Yes (Other)
  Sender: FDA-Public Use
  Company Number: DE-ROCHE-2324917

PATIENT
  Age: 42 Year
  Sex: Female

DRUGS (9)
  1. OCREVUS [Suspect]
     Active Substance: OCRELIZUMAB
     Route: 042
     Dates: start: 20191114
  2. BACLOFEN. [Concomitant]
     Active Substance: BACLOFEN
  3. PALEXIA [Concomitant]
     Active Substance: TAPENTADOL HYDROCHLORIDE
  4. OCREVUS [Suspect]
     Active Substance: OCRELIZUMAB
     Route: 042
     Dates: start: 20201112
  5. OCREVUS [Suspect]
     Active Substance: OCRELIZUMAB
     Indication: PRIMARY PROGRESSIVE MULTIPLE SCLEROSIS
     Route: 042
     Dates: start: 20190506
  6. OCREVUS [Suspect]
     Active Substance: OCRELIZUMAB
     Route: 042
     Dates: start: 20200514
  7. SPASMEX (GERMANY) [Concomitant]
     Dosage: 1?0?2
  8. SPASMEX (GERMANY) [Concomitant]
     Dosage: 1?0?1
  9. ANALGIN (GERMANY) [Concomitant]

REACTIONS (20)
  - Vitamin D decreased [Recovered/Resolved]
  - Gait disturbance [Recovering/Resolving]
  - Blood pressure increased [Recovered/Resolved]
  - Sleep disorder [Not Recovered/Not Resolved]
  - Coronavirus test positive [Recovered/Resolved]
  - Vitamin B12 decreased [Not Recovered/Not Resolved]
  - Micturition disorder [Not Recovered/Not Resolved]
  - Meniscus injury [Recovered/Resolved]
  - Nasopharyngitis [Recovered/Resolved]
  - Dysphonia [Recovered/Resolved]
  - Temperature perception test abnormal [Recovered/Resolved]
  - Apathy [Recovering/Resolving]
  - Onychoclasis [Not Recovered/Not Resolved]
  - Fatigue [Not Recovered/Not Resolved]
  - Myosclerosis [Recovering/Resolving]
  - Headache [Recovered/Resolved]
  - Disturbance in attention [Not Recovered/Not Resolved]
  - Therapeutic product effect decreased [Unknown]
  - Visual impairment [Recovered/Resolved]
  - Joint swelling [Recovered/Resolved]

NARRATIVE: CASE EVENT DATE: 20190506
